FAERS Safety Report 21501897 (Version 1)
Quarter: 2022Q4

REPORT INFORMATION
  Report Type: Report from Study
  Country: US (occurrence: US)
  Receive Date: 20221025
  Receipt Date: 20221025
  Transmission Date: 20230112
  Serious: Yes (Hospitalization)
  Sender: FDA-Public Use
  Company Number: US-KADMON-US-KAD-22-00682

PATIENT
  Sex: Male

DRUGS (1)
  1. BELUMOSUDIL [Suspect]
     Active Substance: BELUMOSUDIL
     Indication: Product used for unknown indication
     Dosage: 200 MILLIGRAM, UNK
     Route: 065

REACTIONS (6)
  - Pneumonia [Unknown]
  - Skin tightness [Unknown]
  - Rash [Unknown]
  - Depressed mood [Unknown]
  - Transfusion [Unknown]
  - Haemoglobin decreased [Unknown]
